FAERS Safety Report 6157564-X (Version None)
Quarter: 2009Q2

REPORT INFORMATION
  Report Type: 
  Country: None (occurrence: None)
  Receive Date: 20090414
  Receipt Date: 20090407
  Transmission Date: 20091009
  Serious: Yes (Other)
  Sender: FDA-Public Use
  Company Number: CHPA2009US08916

PATIENT
  Age: 15 Year
  Sex: Female
  Weight: 47.6 kg

DRUGS (1)
  1. EXCEDRIN (MIGRAINE) [Suspect]
     Indication: HEADACHE
     Dosage: 1 DF, ONCE/SINGLE, ORAL
     Route: 048
     Dates: start: 20090406, end: 20090406

REACTIONS (5)
  - CHOKING [None]
  - CRYING [None]
  - FOREIGN BODY TRAUMA [None]
  - PHARYNGEAL HAEMORRHAGE [None]
  - THROAT IRRITATION [None]
